FAERS Safety Report 5667612-9 (Version None)
Quarter: 2008Q1

REPORT INFORMATION
  Report Type: 
  Country: None (occurrence: None)
  Receive Date: 20080315
  Receipt Date: 20080129
  Transmission Date: 20080703
  Serious: No
  Sender: FDA-Public Use
  Company Number: US-ABBOTT-08P-163-0435787-00

PATIENT
  Sex: Male
  Weight: 83.99 kg

DRUGS (3)
  1. HUMIRA [Suspect]
     Indication: PSORIATIC ARTHROPATHY
     Route: 058
     Dates: start: 20040101
  2. HUMIRA [Suspect]
  3. NAPROXEN SODIUM [Concomitant]
     Indication: PSORIATIC ARTHROPATHY
     Route: 048

REACTIONS (4)
  - ARTHRALGIA [None]
  - INJECTION SITE IRRITATION [None]
  - JOINT SWELLING [None]
  - NASOPHARYNGITIS [None]
